FAERS Safety Report 5506665-5 (Version None)
Quarter: 2007Q4

REPORT INFORMATION
  Report Type: 
  Country: None (occurrence: None)
  Receive Date: 20071101
  Receipt Date: 20071016
  Transmission Date: 20080405
  Serious: Yes (Other)
  Sender: FDA-Public Use
  Company Number: 8027326

PATIENT
  Age: 40 Year
  Sex: Male

DRUGS (3)
  1. LEVETIRACETAM [Suspect]
     Indication: EPILEPSY
  2. OXCARBAZEPINE [Suspect]
     Indication: EPILEPSY
  3. LAMICTAL [Suspect]
     Indication: EPILEPSY
     Dosage: 25 MG /D PO
     Route: 048
     Dates: start: 20070601, end: 20070614

REACTIONS (6)
  - ANGER [None]
  - DRUG INEFFECTIVE [None]
  - GRAND MAL CONVULSION [None]
  - RASH [None]
  - SPEECH DISORDER [None]
  - SUICIDAL IDEATION [None]
